FAERS Safety Report 8648575 (Version 3)
Quarter: 2012Q4

REPORT INFORMATION
  Report Type: 
  Country: JP (occurrence: JP)
  Receive Date: 20120703
  Receipt Date: 20120911
  Transmission Date: 20130627
  Serious: Yes (Other)
  Sender: FDA-Public Use
  Company Number: JP-GLAXOSMITHKLINE-B0811364A

PATIENT
  Age: 39 Year
  Sex: Female

DRUGS (3)
  1. PAXIL [Suspect]
     Indication: DEPRESSION
     Dosage: 20MG Per day
     Route: 048
     Dates: start: 20101115, end: 20120625
  2. PAXIL [Suspect]
     Indication: DEPRESSION
     Dosage: 15MG Per day
     Route: 048
     Dates: start: 20120626
  3. DEPROMEL [Concomitant]
     Dosage: 100MG Twice per day
     Route: 048
     Dates: start: 20110609

REACTIONS (4)
  - Electrocardiogram QT prolonged [Recovered/Resolved]
  - Palpitations [Not Recovered/Not Resolved]
  - Chest pain [Recovering/Resolving]
  - Sinus arrhythmia [Recovering/Resolving]
